FAERS Safety Report 9286238 (Version 1)
Quarter: 2013Q2

REPORT INFORMATION
  Report Type: Report from Study
  Country: US (occurrence: US)
  Receive Date: 20130513
  Receipt Date: 20130513
  Transmission Date: 20140414
  Serious: Yes (Hospitalization)
  Sender: FDA-Public Use
  Company Number: US-GLAXOSMITHKLINE-B0887335A

PATIENT
  Age: 79 Year
  Sex: Male
  Weight: 89.8 kg

DRUGS (11)
  1. FLUTICASONE FUROATE + VILANTEROL TRIFENATATE [Suspect]
     Indication: CHRONIC OBSTRUCTIVE PULMONARY DISEASE
     Dates: start: 20111212, end: 20130422
  2. FLUTICASONE FUROATE + VILANTEROL TRIFENATATE [Suspect]
     Dates: start: 20130425
  3. OMEGA-3 [Concomitant]
     Indication: SUPPLEMENTATION THERAPY
     Dosage: 1000MG TWICE PER DAY
     Route: 048
     Dates: start: 20111211
  4. ENABLEX [Concomitant]
     Indication: BENIGN PROSTATIC HYPERPLASIA
     Dosage: 7.5MG PER DAY
     Route: 048
     Dates: start: 20121129
  5. TAMSULOSIN [Concomitant]
     Indication: BENIGN PROSTATIC HYPERPLASIA
     Dosage: .4MG PER DAY
     Route: 048
     Dates: start: 20121129
  6. LISINOPRIL [Concomitant]
     Indication: HYPERTENSION
     Dosage: 5MG PER DAY
     Route: 048
     Dates: start: 20130123
  7. ASPIRIN [Concomitant]
     Indication: PAIN
     Route: 048
     Dates: start: 1955
  8. DOXAZOSIN [Concomitant]
     Indication: BENIGN PROSTATIC HYPERPLASIA
     Dosage: 4MG PER DAY
     Route: 048
     Dates: start: 20091221
  9. VICODIN [Concomitant]
     Indication: BACK PAIN
     Route: 048
     Dates: start: 20100322
  10. OXYGEN [Concomitant]
     Indication: CHRONIC OBSTRUCTIVE PULMONARY DISEASE
     Route: 055
     Dates: start: 20091020
  11. TUMS [Concomitant]
     Indication: DYSPEPSIA
     Route: 048

REACTIONS (1)
  - Lacunar infarction [Recovered/Resolved]
